FAERS Safety Report 8129352-6 (Version None)
Quarter: 2012Q1

REPORT INFORMATION
  Report Type: 
  Country: None (occurrence: None)
  Receive Date: 20120210
  Receipt Date: 20120208
  Transmission Date: 20120608
  Serious: Yes (Other)
  Sender: FDA-Public Use
  Company Number: US-MERCK-1202USA01416

PATIENT
  Age: 41 Year
  Sex: Female

DRUGS (3)
  1. ALENDRONATE SODIUM [Suspect]
     Route: 065
     Dates: start: 20080201, end: 20100101
  2. FOSAMAX [Suspect]
     Route: 048
     Dates: start: 20000101, end: 20080101
  3. FOSAMAX [Suspect]
     Route: 048
     Dates: start: 20080201, end: 20100101

REACTIONS (2)
  - LOW TURNOVER OSTEOPATHY [None]
  - FEMUR FRACTURE [None]
